FAERS Safety Report 5388500-1 (Version None)
Quarter: 2007Q3

REPORT INFORMATION
  Report Type: 
  Country: None (occurrence: None)
  Receive Date: 20070716
  Receipt Date: 20070711
  Transmission Date: 20080115
  Serious: Yes (Hospitalization)
  Sender: FDA-Public Use
  Company Number: US-ELI_LILLY_AND_COMPANY-US200707002771

PATIENT
  Age: 60 Year
  Sex: Male

DRUGS (3)
  1. BYETTA [Suspect]
     Indication: TYPE 2 DIABETES MELLITUS
     Dosage: 10 UG, 2/D
     Route: 058
  2. METFORMIN HCL [Concomitant]
     Indication: DIABETES MELLITUS
     Dosage: 500 MG, 2/D
  3. ACTOS [Concomitant]
     Indication: DIABETES MELLITUS
     Dosage: 15 MG, 2/D

REACTIONS (2)
  - BLOOD GLUCOSE ABNORMAL [None]
  - CELLULITIS [None]
